FAERS Safety Report 4438893-4 (Version None)
Quarter: 2004Q3

REPORT INFORMATION
  Report Type: 
  Country: None (occurrence: None)
  Receive Date: 20040830
  Receipt Date: 20040819
  Transmission Date: 20050211
  Serious: Yes (Hospitalization, Other)
  Sender: FDA-Public Use
  Company Number: 2003115954

PATIENT
  Age: 61 Year
  Sex: Male
  Weight: 139.7079 kg

DRUGS (13)
  1. TIKOSYN [Suspect]
     Indication: ATRIAL FIBRILLATION
     Dosage: 1000 MCG (500 MCG, 2 IN 1 D), ORAL
     Route: 048
     Dates: start: 20031013
  2. ALL OTHER NON-THERAPEUTIC PRODUCTS (ALL OTHER NON-THERAPEUTIC PRODUCTS [Suspect]
     Indication: ILL-DEFINED DISORDER
     Dosage: ORAL
     Route: 048
     Dates: start: 20031025, end: 20031025
  3. SOTALOL HCL [Concomitant]
  4. POTASSIUM CHLORIDE [Concomitant]
  5. AMILORIDE (AMILORIDE) [Concomitant]
  6. IRBESARTAN (IRBESARTAN) [Concomitant]
  7. FUROSEMIDE [Concomitant]
  8. ATENOLOL [Concomitant]
  9. TOCOPHEROL CONCENTRATE CAP [Concomitant]
  10. FISH OIL (FISH OIL) [Concomitant]
  11. WARFARIN SODIUM [Concomitant]
  12. ALLOPURINOL [Concomitant]
  13. FLUTICASONE PROPIONATE [Concomitant]

REACTIONS (9)
  - ATRIAL FIBRILLATION [None]
  - BLOOD POTASSIUM DECREASED [None]
  - BLOOD PRESSURE DECREASED [None]
  - DISEASE RECURRENCE [None]
  - DIZZINESS [None]
  - DRUG INEFFECTIVE [None]
  - INSOMNIA [None]
  - MEDICATION ERROR [None]
  - PHARMACEUTICAL PRODUCT COMPLAINT [None]
